FAERS Safety Report 20841734 (Version 2)
Quarter: 2022Q4

REPORT INFORMATION
  Report Type: Spontaneous
  Country: US (occurrence: US)
  Receive Date: 20220518
  Receipt Date: 20221013
  Transmission Date: 20230113
  Serious: Yes (Other)
  Sender: FDA-Public Use
  Company Number: US-BRISTOL-MYERS SQUIBB COMPANY-2022-034392

PATIENT
  Age: 66 Year
  Sex: Female
  Weight: 78.9 kg

DRUGS (1)
  1. REVLIMID [Suspect]
     Active Substance: LENALIDOMIDE
     Indication: Product used for unknown indication
     Dosage: 21 DAYS ON AND 7 DAYS OFF
     Route: 048
     Dates: start: 202204

REACTIONS (3)
  - Lacrimation increased [Not Recovered/Not Resolved]
  - Pulmonary embolism [Unknown]
  - Urticaria [Unknown]

NARRATIVE: CASE EVENT DATE: 20220423
